FAERS Safety Report 6314923-X (Version None)
Quarter: 2009Q3

REPORT INFORMATION
  Report Type: 
  Country: None (occurrence: None)
  Receive Date: 20090819
  Receipt Date: 20090811
  Transmission Date: 20100115
  Serious: Yes (Hospitalization)
  Sender: FDA-Public Use
  Company Number: A0799953A

PATIENT
  Age: 54 Year
  Sex: Male
  Weight: 144.1 kg

DRUGS (6)
  1. AVANDIA [Suspect]
     Indication: DIABETES MELLITUS
     Dosage: 4MG TWICE PER DAY
     Route: 048
     Dates: start: 20031201, end: 20070401
  2. PROTONIX [Concomitant]
  3. INSULIN [Concomitant]
  4. TRICOR [Concomitant]
  5. CELEBREX [Concomitant]
  6. ATENOLOL [Concomitant]

REACTIONS (3)
  - ARTHRITIS [None]
  - FOOT FRACTURE [None]
  - FRACTURE NONUNION [None]
